FAERS Safety Report 9465126 (Version 1)
Quarter: 2013Q3

REPORT INFORMATION
  Report Type: Spontaneous
  Country: US (occurrence: US)
  Receive Date: 20130819
  Receipt Date: 20130819
  Transmission Date: 20140515
  Serious: Yes (Other)
  Sender: FDA-Public Use
  Company Number: US-TEVA-426777USA

PATIENT
  Sex: Female

DRUGS (1)
  1. PROAIR HFA [Suspect]

REACTIONS (5)
  - Anaphylactic reaction [Recovered/Resolved]
  - Bronchospasm paradoxical [Recovered/Resolved]
  - Lung disorder [Recovered/Resolved]
  - Inflammation [Recovered/Resolved]
  - Dyspnoea [Not Recovered/Not Resolved]
